FAERS Safety Report 6341212-X (Version None)
Quarter: 2009Q3

REPORT INFORMATION
  Report Type: 
  Country: None (occurrence: None)
  Receive Date: 20090904
  Receipt Date: 20090522
  Transmission Date: 20100115
  Serious: No
  Sender: FDA-Public Use
  Company Number: A0785893A

PATIENT
  Age: 84 Year
  Sex: Female

DRUGS (11)
  1. REQUIP [Suspect]
     Indication: RESTLESS LEGS SYNDROME
     Dosage: 1MG PER DAY
     Route: 048
     Dates: start: 20020101
  2. ZONISAMIDE [Suspect]
     Dosage: 200MG PER DAY
     Route: 048
     Dates: start: 20080601
  3. LEXAPRO [Concomitant]
  4. NORVASC [Concomitant]
  5. ALENDRONATE SODIUM [Concomitant]
  6. METOPROLOL [Concomitant]
  7. CILOSTAZOL [Concomitant]
  8. FUROSEMIDE [Concomitant]
  9. QUINAPRIL [Concomitant]
  10. SYNTHROID [Concomitant]
  11. ASPIRIN [Concomitant]

REACTIONS (4)
  - CONFUSIONAL STATE [None]
  - FATIGUE [None]
  - MOOD ALTERED [None]
  - SOMNOLENCE [None]
